FAERS Safety Report 12357815 (Version 1)
Quarter: 2016Q2

REPORT INFORMATION
  Report Type: Report from Study
  Country: US (occurrence: US)
  Receive Date: 20160512
  Receipt Date: 20160512
  Transmission Date: 20160815
  Serious: Yes (Other)
  Sender: FDA-Public Use
  Company Number: US-AMGEN-USASL2016058933

PATIENT
  Age: 62 Year
  Sex: Male

DRUGS (1)
  1. ENBREL [Suspect]
     Active Substance: ETANERCEPT
     Indication: PRODUCT USED FOR UNKNOWN INDICATION
     Dosage: UNK
     Route: 065

REACTIONS (8)
  - Heart rate irregular [Unknown]
  - Drug effect incomplete [Unknown]
  - Anxiety [Unknown]
  - Hypertension [Unknown]
  - Pulse abnormal [Unknown]
  - Injection site pain [Unknown]
  - Injection site erythema [Unknown]
  - Loss of consciousness [Unknown]

NARRATIVE: CASE EVENT DATE: 20160502
